FAERS Safety Report 16245919 (Version 10)
Quarter: 2021Q2

REPORT INFORMATION
  Report Type: Report from Study
  Country: US (occurrence: US)
  Receive Date: 20190426
  Receipt Date: 20210526
  Transmission Date: 20210716
  Serious: Yes (Hospitalization, Other)
  Sender: FDA-Public Use
  Company Number: US-MALLINCKRODT-T201903125

PATIENT
  Age: 61 Year
  Sex: Female
  Weight: 57 kg

DRUGS (6)
  1. REPOSITORY CORTICOTROPIN INJECTION [Suspect]
     Active Substance: CORTICOTROPIN
     Indication: NEPHROTIC SYNDROME
     Dosage: 80 UNITS, TWICE WEEKLY
     Route: 058
     Dates: start: 201812
  2. MYCOPHENOLATE [Suspect]
     Active Substance: MYCOPHENOLIC ACID
     Indication: PRODUCT USED FOR UNKNOWN INDICATION
     Dosage: UNK
     Route: 065
  3. REPOSITORY CORTICOTROPIN INJECTION [Suspect]
     Active Substance: CORTICOTROPIN
     Dosage: 80 UNITS THREE TIMES PER WEEK
     Route: 058
     Dates: end: 20200818
  4. REPOSITORY CORTICOTROPIN INJECTION [Suspect]
     Active Substance: CORTICOTROPIN
     Dosage: 0.3 MILLILITER, DAILY
     Route: 058
     Dates: start: 2021, end: 202105
  5. REPOSITORY CORTICOTROPIN INJECTION [Suspect]
     Active Substance: CORTICOTROPIN
     Dosage: 0.7 MILLILITER, QOD
     Route: 058
     Dates: start: 202012, end: 2021
  6. REPOSITORY CORTICOTROPIN INJECTION [Suspect]
     Active Substance: CORTICOTROPIN
     Dosage: 80 UNITS TWICE WEEKLY
     Route: 058
     Dates: start: 20200907, end: 2020

REACTIONS (24)
  - Peripheral swelling [Recovered/Resolved]
  - Weight increased [Recovering/Resolving]
  - Tooth extraction [Unknown]
  - Tooth disorder [Unknown]
  - Weight decreased [Recovering/Resolving]
  - Oropharyngeal pain [Not Recovered/Not Resolved]
  - Hunger [Unknown]
  - Ludwig angina [Unknown]
  - Protein total increased [Recovering/Resolving]
  - Cough [Not Recovered/Not Resolved]
  - Gait disturbance [Unknown]
  - Dyspnoea [Unknown]
  - Thirst [Unknown]
  - Joint swelling [Unknown]
  - Nasal congestion [Not Recovered/Not Resolved]
  - Hangover [Not Recovered/Not Resolved]
  - Nasopharyngitis [Not Recovered/Not Resolved]
  - Dizziness [Recovering/Resolving]
  - Oedema [Recovering/Resolving]
  - Alopecia [Unknown]
  - Increased appetite [Unknown]
  - Therapeutic product effect incomplete [Unknown]
  - Intentional underdose [Not Recovered/Not Resolved]
  - Feeling abnormal [Not Recovered/Not Resolved]

NARRATIVE: CASE EVENT DATE: 2019
